FAERS Safety Report 24968764 (Version 2)
Quarter: 2025Q1

REPORT INFORMATION
  Report Type: Spontaneous
  Country: US (occurrence: US)
  Receive Date: 20250214
  Receipt Date: 20250218
  Transmission Date: 20250409
  Serious: Yes (Other)
  Sender: SANOFI AVENTIS
  Company Number: US-SA-2025SA042750

PATIENT

DRUGS (2)
  1. LANTUS [Suspect]
     Active Substance: INSULIN GLARGINE
     Route: 065
  2. INSULIN ASPART [Suspect]
     Active Substance: INSULIN ASPART

REACTIONS (10)
  - Myocardial infarction [Unknown]
  - Cataract [Unknown]
  - Diabetes mellitus [Unknown]
  - Hypertension [Unknown]
  - Hypoaesthesia [Unknown]
  - Impaired driving ability [Unknown]
  - Peripheral swelling [Unknown]
  - Visual impairment [Unknown]
  - Injection site pain [Unknown]
  - Blood glucose abnormal [Unknown]

NARRATIVE: CASE EVENT DATE: 20100101
